FAERS Safety Report 24749285 (Version 4)
Quarter: 2025Q4

REPORT INFORMATION
  Report Type: Spontaneous
  Country: EU (occurrence: EU)
  Receive Date: 20241218
  Receipt Date: 20251209
  Transmission Date: 20260118
  Serious: Yes (Other)
  Sender: MYLAN
  Company Number: EU-002147023-NVSC2024CZ229274

PATIENT

DRUGS (11)
  1. IMATINIB [Suspect]
     Active Substance: IMATINIB
     Indication: Chronic myeloid leukaemia
     Dosage: 400 MILLIGRAM, QD (FIRST LINE TREATMENT)
  2. IMATINIB [Suspect]
     Active Substance: IMATINIB
     Dosage: 300 MILLIGRAM, QD (FIRST LINE TREATMENT)
  3. IMATINIB [Suspect]
     Active Substance: IMATINIB
     Dosage: 200 MILLIGRAM, QD (FIRST LINE TREATMENT)
  4. NILOTINIB [Suspect]
     Active Substance: NILOTINIB
     Indication: Chronic myeloid leukaemia
     Dosage: 450 MILLIGRAM, QD (SECOND-LINE TREATMENT)
  5. NILOTINIB [Suspect]
     Active Substance: NILOTINIB
     Dosage: 300 MILLIGRAM, QD (SECOND-LINE TREATMENT)
  6. NILOTINIB [Suspect]
     Active Substance: NILOTINIB
     Dosage: 450 MILLIGRAM, QD (SECOND-LINE TREATMENT)
  7. ASCIMINIB [Suspect]
     Active Substance: ASCIMINIB
     Indication: Chronic myeloid leukaemia
     Dosage: 80 MILLIGRAM, QD (FOURTH-LINE TREATMENT)
     Dates: start: 202308
  8. BOSUTINIB [Suspect]
     Active Substance: BOSUTINIB
     Indication: Chronic myeloid leukaemia
     Dosage: 300 MILLIGRAM, QD (THIRD LINE TREATMENT)
     Dates: start: 202102
  9. BOSUTINIB [Suspect]
     Active Substance: BOSUTINIB
     Dosage: 200 MILLIGRAM, QD
  10. BOSUTINIB [Suspect]
     Active Substance: BOSUTINIB
     Dosage: 100 MILLIGRAM, QD
  11. BOSUTINIB [Suspect]
     Active Substance: BOSUTINIB
     Dosage: 300 MILLIGRAM

REACTIONS (14)
  - Pleural effusion [Recovering/Resolving]
  - Dyspnoea [Recovering/Resolving]
  - Arthralgia [Recovering/Resolving]
  - Nausea [Recovering/Resolving]
  - Obstructive airways disorder [Recovering/Resolving]
  - Cytogenetic analysis abnormal [Not Recovered/Not Resolved]
  - Peripheral swelling [Recovering/Resolving]
  - Myalgia [Unknown]
  - Vomiting [Recovering/Resolving]
  - Pruritus [Recovering/Resolving]
  - Diarrhoea [Recovered/Resolved]
  - Abdominal pain [Recovered/Resolved]
  - Muscle spasms [Recovered/Resolved]
  - Treatment failure [Unknown]
